FAERS Safety Report 13054704 (Version 1)
Quarter: 2016Q4

REPORT INFORMATION
  Report Type: Spontaneous
  Country: US (occurrence: US)
  Receive Date: 20161221
  Receipt Date: 20161221
  Transmission Date: 20170207
  Serious: No
  Sender: FDA-Public Use
  Company Number: None

PATIENT
  Age: 72 Year
  Sex: Female

DRUGS (9)
  1. MULTI VITAMIN [Concomitant]
     Active Substance: VITAMINS
  2. CARB/LEVO [Concomitant]
     Active Substance: CARBIDOPA\LEVODOPA
  3. RECLAST [Concomitant]
     Active Substance: ZOLEDRONIC ACID
  4. NUPLAZID [Suspect]
     Active Substance: PIMAVANSERIN TARTRATE
     Indication: PARKINSON^S DISEASE
     Route: 048
     Dates: start: 201611
  5. NAMENDA XR [Concomitant]
     Active Substance: MEMANTINE HYDROCHLORIDE
  6. QUETIAPINE. [Concomitant]
     Active Substance: QUETIAPINE
  7. MIRTAZAPINE. [Concomitant]
     Active Substance: MIRTAZAPINE
  8. MIDODRINE [Concomitant]
     Active Substance: MIDODRINE
  9. HYDROCO/APAP [Concomitant]
     Active Substance: ACETAMINOPHEN\HYDROCODONE

REACTIONS (1)
  - Drug ineffective [None]

NARRATIVE: CASE EVENT DATE: 201612
